FAERS Safety Report 8533884-6 (Version None)
Quarter: 2012Q3

REPORT INFORMATION
  Report Type: 
  Country: None (occurrence: None)
  Receive Date: 20120724
  Receipt Date: 20120712
  Transmission Date: 20120928
  Serious: Yes (Hospitalization)
  Sender: FDA-Public Use
  Company Number: US-ROCHE-1087611

PATIENT
  Age: 54 Year
  Sex: Male
  Weight: 110 kg

DRUGS (11)
  1. CYCLOSPORINE [Concomitant]
  2. MYFORTIC [Concomitant]
  3. TAMSULOSIN HCL [Concomitant]
  4. LOSARTAN POTASSIUM [Concomitant]
  5. FLUOXETINE HCL [Concomitant]
  6. COPEGUS [Suspect]
     Indication: HEPATITIS C
     Route: 065
     Dates: start: 20120301
  7. TELAPREVIR [Suspect]
     Route: 065
  8. PEGASYS [Suspect]
     Indication: HEPATITIS C
     Route: 058
     Dates: start: 20120410
  9. MULTI-VITAMIN [Concomitant]
  10. TELAPREVIR [Suspect]
     Indication: HEPATITIS C
     Route: 065
     Dates: start: 20120410
  11. ALLOPURINOL [Concomitant]

REACTIONS (9)
  - ANAEMIA [None]
  - PANCREATITIS [None]
  - NAUSEA [None]
  - LEUKOPENIA [None]
  - LACTIC ACIDOSIS [None]
  - ILEUS [None]
  - SYSTEMIC INFLAMMATORY RESPONSE SYNDROME [None]
  - VOMITING [None]
  - DIARRHOEA [None]
